FAERS Safety Report 18217966 (Version 1)
Quarter: 2020Q3

REPORT INFORMATION
  Report Type: Spontaneous
  Country: FR (occurrence: FR)
  Receive Date: 20200901
  Receipt Date: 20200901
  Transmission Date: 20201103
  Serious: Yes (Hospitalization)
  Sender: FDA-Public Use
  Company Number: FR-TEVA-2020-FR-1821139

PATIENT
  Age: 66 Year
  Sex: Male
  Weight: 118 kg

DRUGS (19)
  1. PYLERA [Suspect]
     Active Substance: BISMUTH SUBCITRATE POTASSIUM\METRONIDAZOLE\TETRACYCLINE HYDROCHLORIDE
     Indication: GASTRIC ULCER HELICOBACTER
     Dosage: 12 DOSAGE FORMS
     Route: 048
     Dates: start: 20200625, end: 20200703
  2. COSENTYX [Concomitant]
     Active Substance: SECUKINUMAB
  3. AMYCOR ONYCHOSET, POMMADE [Concomitant]
  4. ANORO ELLIPTA [Concomitant]
     Active Substance: UMECLIDINIUM BROMIDE\VILANTEROL TRIFENATATE
  5. CHLORHYDRATE DE FLUOXETINE [Concomitant]
     Active Substance: FLUOXETINE HYDROCHLORIDE
  6. IRBESARTAN. [Concomitant]
     Active Substance: IRBESARTAN
  7. CETIRIZINE (DICHLORHYDRATE DE) [Concomitant]
     Active Substance: CETIRIZINE HYDROCHLORIDE
  8. LIRAGLUTIDE [Concomitant]
     Active Substance: LIRAGLUTIDE
  9. METFORMINE [Concomitant]
     Active Substance: METFORMIN HYDROCHLORIDE
  10. DOLIPRANE [Concomitant]
     Active Substance: ACETAMINOPHEN
  11. CALCIDOSE [Concomitant]
  12. ZOPICLONE [Concomitant]
     Active Substance: ZOPICLONE
  13. LEVOTHYROXINE SODIQUE [Concomitant]
     Active Substance: LEVOTHYROXINE SODIUM
  14. PRIMPERAN [Concomitant]
     Active Substance: METOCLOPRAMIDE HYDROCHLORIDE
  15. OMEPRAZOLE. [Suspect]
     Active Substance: OMEPRAZOLE
     Indication: GASTRIC ULCER HELICOBACTER
     Dosage: 20MG
     Route: 048
     Dates: start: 20200625, end: 20200703
  16. ZYMAD [Concomitant]
     Active Substance: CHOLECALCIFEROL
  17. OMIX [Concomitant]
     Active Substance: TAMSULOSIN HYDROCHLORIDE
  18. CORTANCYL [Concomitant]
     Active Substance: PREDNISONE
  19. ELIQUIS [Concomitant]
     Active Substance: APIXABAN

REACTIONS (8)
  - Myalgia [Recovered/Resolved]
  - Muscular weakness [Recovered/Resolved]
  - Somnolence [Recovered/Resolved]
  - Visual acuity reduced [Recovered/Resolved]
  - Hallucination [Recovered/Resolved]
  - Urinary incontinence [Recovering/Resolving]
  - Dysuria [Recovering/Resolving]
  - Headache [Recovered/Resolved]

NARRATIVE: CASE EVENT DATE: 202007
